FAERS Safety Report 7277123-5 (Version None)
Quarter: 2011Q1

REPORT INFORMATION
  Report Type: 
  Country: None (occurrence: None)
  Receive Date: 20110202
  Receipt Date: 20110202
  Transmission Date: 20110831
  Serious: Yes (Other)
  Sender: FDA-Public Use
  Company Number: None

PATIENT
  Age: 74 Year
  Sex: Male
  Weight: 81.6475 kg

DRUGS (1)
  1. LISINOPRIL [Suspect]
     Indication: CARDIAC DISORDER
     Dosage: 1 TABLET PER DAY
     Dates: start: 20110101

REACTIONS (3)
  - URTICARIA [None]
  - PRURITUS [None]
  - LIP SWELLING [None]
